FAERS Safety Report 9068801 (Version 1)
Quarter: 2013Q1

REPORT INFORMATION
  Report Type: Spontaneous
  Country: CA (occurrence: CA)
  Receive Date: 20130215
  Receipt Date: 20130215
  Transmission Date: 20140127
  Serious: Yes (Other)
  Sender: FDA-Public Use
  Company Number: CA-NAPPMUNDI-CAN-2013-0003741

PATIENT
  Age: 45 Year
  Sex: Female

DRUGS (4)
  1. OXYCONTIN TABLETS [Suspect]
     Indication: OCCIPITAL NEURALGIA
     Dosage: UNK
     Route: 065
  2. OXYCONTIN TABLETS [Suspect]
     Dosage: 345 MG, DAILY
     Route: 065
     Dates: start: 201209, end: 20130127
  3. OXYIR [Suspect]
     Indication: OCCIPITAL NEURALGIA
     Dosage: UNK
     Route: 065
     Dates: end: 20130127
  4. CESAMET [Concomitant]
     Indication: OCCIPITAL NEURALGIA
     Dosage: UNK
     Route: 065

REACTIONS (7)
  - Drug dependence [Unknown]
  - Tooth fracture [Unknown]
  - Enamel anomaly [Unknown]
  - Pain [Unknown]
  - Judgement impaired [Unknown]
  - Feeling abnormal [Unknown]
  - Dry mouth [Unknown]
